FAERS Safety Report 8716438 (Version 2)
Quarter: 2013Q4

REPORT INFORMATION
  Report Type: Spontaneous
  Country: US (occurrence: US)
  Receive Date: 20120810
  Receipt Date: 20131105
  Transmission Date: 20140711
  Serious: Yes (Hospitalization, Other)
  Sender: FDA-Public Use
  Company Number: US-009507513-1207USA011295

PATIENT
  Age: 54 Year
  Sex: Female

DRUGS (20)
  1. ZOCOR [Suspect]
     Dosage: 20 MG, UNK
     Route: 048
  2. FOSAMAX [Suspect]
     Route: 048
  3. LIPITOR [Suspect]
     Dosage: 10 MG, QPM
     Route: 048
  4. LIPITOR [Suspect]
     Dosage: 20 MG, QPM
     Route: 048
  5. RAMIPRIL [Suspect]
     Dosage: 5 MG, UNK
  6. COZAAR [Concomitant]
     Dosage: 50MG/12.5MG
  7. DUACT [Concomitant]
     Dosage: UNK, QOD
  8. NEXIUM [Concomitant]
     Dosage: 40 MG, UNK
  9. VITAMIN E [Concomitant]
  10. PRILOSEC [Concomitant]
  11. DETROL [Concomitant]
  12. ACETAMINOPHEN [Concomitant]
  13. VITAMIN D (UNSPECIFIED) [Concomitant]
  14. CALCIUM (UNSPECIFIED) [Concomitant]
  15. ACTONEL [Concomitant]
  16. DOXAZOSIN MESYLATE [Concomitant]
  17. CENTRUM SILVER [Concomitant]
  18. ASPIRIN [Concomitant]
  19. PROCRIT [Concomitant]
  20. PREDNISONE [Concomitant]

REACTIONS (35)
  - Lymph node pain [Unknown]
  - Rhinitis allergic [Unknown]
  - Hypertension [Unknown]
  - Abdominal pain [Unknown]
  - Hepatic steatosis [Unknown]
  - Musculoskeletal pain [Unknown]
  - Vomiting [Unknown]
  - Cardiac disorder [Unknown]
  - Chest pain [Unknown]
  - Diaphragmatic disorder [Unknown]
  - C-reactive protein increased [Unknown]
  - Hepatic enzyme increased [Unknown]
  - Toxicity to various agents [Unknown]
  - Blood cholesterol increased [Unknown]
  - Fatigue [Unknown]
  - Constipation [Unknown]
  - Cholangitis [Unknown]
  - Pneumonia [Unknown]
  - Muscle spasms [Unknown]
  - White blood cell count increased [Unknown]
  - Headache [Unknown]
  - Abdominal pain upper [Unknown]
  - Amylase increased [Unknown]
  - Thymus disorder [Unknown]
  - Synovial rupture [Unknown]
  - Obstruction [Unknown]
  - Hyperlipidaemia [Unknown]
  - Transient ischaemic attack [Unknown]
  - Cough [Unknown]
  - Cataract [Unknown]
  - Oedema peripheral [Unknown]
  - Faecaloma [Unknown]
  - Aortic stenosis [Unknown]
  - Left ventricular hypertrophy [Unknown]
  - Polymyalgia rheumatica [Unknown]
